FAERS Safety Report 9964101 (Version 2)
Quarter: 2014Q3

REPORT INFORMATION
  Report Type: Spontaneous
  Country: FR (occurrence: FR)
  Receive Date: 20140305
  Receipt Date: 20140710
  Transmission Date: 20150326
  Serious: Yes (Other)
  Sender: FDA-Public Use
  Company Number: FR-ASTRAZENECA-2014SE14353

PATIENT
  Age: 19246 Day
  Sex: Male

DRUGS (7)
  1. ATRIPLA [Suspect]
     Active Substance: EFAVIRENZ\EMTRICITABINE\TENOFOVIR DISOPROXIL FUMARATE
     Indication: HIV INFECTION
     Route: 048
     Dates: start: 20090706, end: 201401
  2. LEVOTHYROX [Suspect]
     Active Substance: LEVOTHYROXINE
     Route: 048
  3. VITAMIN B12 [Suspect]
     Active Substance: CYANOCOBALAMIN
     Dosage: 1000 MCG/2 ML 1 DF MONTHLY
     Route: 030
  4. PANTESTONE [Suspect]
     Active Substance: TESTOSTERONE
     Route: 048
  5. GENOTONORM MINIQUICK [Suspect]
     Active Substance: SOMATROPIN
     Dosage: 0.6 MG/0.25 ML 0.3 MG EVERY DAY
     Route: 058
  6. CRESTOR [Suspect]
     Active Substance: ROSUVASTATIN CALCIUM
     Route: 048
  7. UVEDOSE [Suspect]
     Active Substance: CHOLECALCIFEROL
     Dosage: 100000 IU IN 2 MONTHS
     Route: 048

REACTIONS (3)
  - Pyelocaliectasis [Unknown]
  - Hepatocellular injury [Recovered/Resolved]
  - Cholestasis [Recovered/Resolved]

NARRATIVE: CASE EVENT DATE: 20140108
